FAERS Safety Report 10141645 (Version 3)
Quarter: 2014Q2

REPORT INFORMATION
  Report Type: Spontaneous
  Country: IT (occurrence: IT)
  Receive Date: 20140429
  Receipt Date: 20140514
  Transmission Date: 20141212
  Serious: Yes (Hospitalization, Other)
  Sender: FDA-Public Use
  Company Number: IT-PFIZER INC-2014116444

PATIENT
  Age: 85 Year
  Sex: Female

DRUGS (6)
  1. TENORMIN [Suspect]
     Indication: ISCHAEMIC HEART DISEASE PROPHYLAXIS
     Dosage: 100 MG, DAILY
     Route: 048
     Dates: start: 20131001, end: 20140205
  2. LANOXIN [Interacting]
     Indication: MYOCARDIAL ISCHAEMIA
     Dosage: 0.06 MG, DAILY
     Route: 048
     Dates: start: 20130101, end: 20140205
  3. COUMADINE [Concomitant]
     Dosage: 5 MG, UNK
     Route: 065
  4. ALDACTONE [Concomitant]
     Dosage: 25 MG, UNK
     Route: 065
  5. IRBESARTAN [Concomitant]
     Dosage: UNK
     Route: 065
  6. LASIX [Concomitant]
     Dosage: 25 MG, UNK
     Route: 065

REACTIONS (4)
  - Drug interaction [Recovered/Resolved]
  - Toxicity to various agents [Recovered/Resolved]
  - Sinus bradycardia [Recovered/Resolved]
  - Cardioactive drug level increased [Unknown]
